FAERS Safety Report 21077392 (Version 5)
Quarter: 2022Q3

REPORT INFORMATION
  Report Type: Report from Study
  Country: HU (occurrence: None)
  Receive Date: 20220713
  Receipt Date: 20220822
  Transmission Date: 20221026
  Serious: Yes (Hospitalization)
  Sender: FDA-Public Use
  Company Number: HU-Eisai Medical Research-EC-2022-118833

PATIENT
  Age: 75 Year
  Sex: Male
  Weight: 75.5 kg

DRUGS (16)
  1. LENVATINIB [Suspect]
     Active Substance: LENVATINIB
     Indication: Renal cell carcinoma
     Dosage: STARTING DOSE 20 MG, FLUCTUATED DOSAGE
     Route: 048
     Dates: start: 20210624, end: 20220705
  2. LENVATINIB [Suspect]
     Active Substance: LENVATINIB
     Route: 048
     Dates: start: 20220711
  3. PEMBROLIZUMAB [Suspect]
     Active Substance: PEMBROLIZUMAB
     Indication: Renal cell carcinoma
     Route: 042
     Dates: start: 20210624, end: 20220524
  4. PEMBROLIZUMAB [Suspect]
     Active Substance: PEMBROLIZUMAB
     Route: 042
     Dates: start: 20220707
  5. CLOPIDOGREL BISULFATE [Concomitant]
     Active Substance: CLOPIDOGREL BISULFATE
     Dates: start: 201701
  6. VINPOCETINE [Concomitant]
     Active Substance: VINPOCETINE
     Dates: start: 200901
  7. COVEREX AS KOMB [Concomitant]
     Dates: start: 20210701
  8. AMLODIPINE [Concomitant]
     Active Substance: AMLODIPINE BESYLATE
     Dates: start: 20210708
  9. XELODA [Concomitant]
     Active Substance: CAPECITABINE
     Dates: start: 20210729
  10. MOMETASONE FUROATE [Concomitant]
     Active Substance: MOMETASONE FUROATE
     Dates: start: 20211028
  11. CETIRIZINE HYDROCHLORIDE [Concomitant]
     Active Substance: CETIRIZINE HYDROCHLORIDE
     Dates: start: 20211028
  12. METOCLOPRAMIDE HYDROCHLORIDE [Concomitant]
     Active Substance: METOCLOPRAMIDE HYDROCHLORIDE
     Dates: start: 20220302
  13. MEGACE [Concomitant]
     Active Substance: MEGESTROL ACETATE
     Dates: start: 20220413
  14. SYMBICORT [Concomitant]
     Active Substance: BUDESONIDE\FORMOTEROL FUMARATE DIHYDRATE
     Dates: start: 200901
  15. DUAMILD [Concomitant]
     Dates: start: 201301
  16. ALLOPURINOL [Concomitant]
     Active Substance: ALLOPURINOL
     Dates: start: 201801

REACTIONS (1)
  - Diarrhoea [Recovered/Resolved]

NARRATIVE: CASE EVENT DATE: 20220703
